FAERS Safety Report 11823174 (Version 1)
Quarter: 2015Q4

REPORT INFORMATION
  Report Type: Spontaneous
  Country: CA (occurrence: CA)
  Receive Date: 20151210
  Receipt Date: 20151210
  Transmission Date: 20160305
  Serious: Yes (Other)
  Sender: FDA-Public Use
  Company Number: CA-BAYER-2015-003998

PATIENT
  Age: 62 Year
  Sex: Female
  Weight: 86 kg

DRUGS (4)
  1. CIPROFLOXACIN. [Suspect]
     Active Substance: CIPROFLOXACIN
     Indication: ESCHERICHIA TEST POSITIVE
     Dosage: 500 MG, QID
     Route: 048
     Dates: start: 20091224, end: 20091231
  2. NITROFURANTOIN. [Suspect]
     Active Substance: NITROFURANTOIN
     Indication: ESCHERICHIA TEST POSITIVE
     Dosage: UNK
     Dates: start: 20100121
  3. CIPROFLOXACIN. [Suspect]
     Active Substance: CIPROFLOXACIN
     Indication: VISION BLURRED
  4. CIPROFLOXACIN. [Suspect]
     Active Substance: CIPROFLOXACIN
     Indication: MUSCULAR WEAKNESS

REACTIONS (5)
  - Muscle disorder [None]
  - Muscular weakness [None]
  - Photosensitivity reaction [Not Recovered/Not Resolved]
  - Hepatomegaly [None]
  - Vision blurred [Not Recovered/Not Resolved]
